FAERS Safety Report 6664257-9 (Version None)
Quarter: 2010Q2

REPORT INFORMATION
  Report Type: 
  Country: None (occurrence: None)
  Receive Date: 20100401
  Receipt Date: 20100323
  Transmission Date: 20101027
  Serious: Yes (Hospitalization)
  Sender: FDA-Public Use
  Company Number: PHHY2010TW19489

PATIENT
  Sex: Female

DRUGS (1)
  1. EXJADE [Suspect]
     Dosage: 1750 MG, UNK
     Route: 048
     Dates: start: 20070220

REACTIONS (5)
  - ABDOMINAL DISCOMFORT [None]
  - LIVER FUNCTION TEST ABNORMAL [None]
  - NAUSEA [None]
  - RENAL FUNCTION TEST ABNORMAL [None]
  - VOMITING [None]
